FAERS Safety Report 5919724-X (Version None)
Quarter: 2008Q4

REPORT INFORMATION
  Report Type: 
  Country: None (occurrence: None)
  Receive Date: 20081015
  Receipt Date: 20081009
  Transmission Date: 20090506
  Serious: No
  Sender: FDA-Public Use
  Company Number: US-B.I. PHARMACEUTICALS,INC./RIDGEFIELD-2008-BP-15757BP

PATIENT
  Sex: Female

DRUGS (1)
  1. ZANTAC 150 [Suspect]
     Dosage: 150MG
     Route: 048

REACTIONS (3)
  - BLOOD GLUCOSE INCREASED [None]
  - GLUCOSE TOLERANCE TEST ABNORMAL [None]
  - WEIGHT DECREASED [None]
